FAERS Safety Report 8343580-6 (Version None)
Quarter: 2012Q2

REPORT INFORMATION
  Report Type: 
  Country: None (occurrence: None)
  Receive Date: 20120508
  Receipt Date: 20100602
  Transmission Date: 20120825
  Serious: No
  Sender: FDA-Public Use
  Company Number: US-TEVA-2010003029

PATIENT
  Sex: Male
  Weight: 145.28 kg

DRUGS (5)
  1. TREANDA [Suspect]
     Indication: CHRONIC LYMPHOCYTIC LEUKAEMIA
     Route: 042
     Dates: start: 20100524, end: 20100525
  2. RITUXAN [Concomitant]
  3. LOTREL [Concomitant]
  4. ALLOPURINOL [Concomitant]
  5. PRAVASTATIN [Concomitant]

REACTIONS (1)
  - HEARING IMPAIRED [None]
